FAERS Safety Report 8135499-0 (Version None)
Quarter: 2012Q1

REPORT INFORMATION
  Report Type: 
  Country: None (occurrence: None)
  Receive Date: 20120214
  Receipt Date: 20120207
  Transmission Date: 20120608
  Serious: Yes (Other)
  Sender: FDA-Public Use
  Company Number: US-AMGEN-USASP2012008279

PATIENT
  Age: 59 Year
  Sex: Female

DRUGS (1)
  1. ENBREL [Suspect]
     Indication: RHEUMATOID ARTHRITIS
     Dosage: 50 MG, QWK
     Dates: start: 20111201

REACTIONS (7)
  - HEADACHE [None]
  - SPEECH DISORDER [None]
  - HAND FRACTURE [None]
  - THIRST [None]
  - FALL [None]
  - FATIGUE [None]
  - HYPERTENSION [None]
